FAERS Safety Report 14954967 (Version 1)
Quarter: 2018Q2

REPORT INFORMATION
  Report Type: Report from Study
  Country: CA (occurrence: CA)
  Receive Date: 20180530
  Receipt Date: 20180530
  Transmission Date: 20180711
  Serious: Yes (Other)
  Sender: FDA-Public Use
  Company Number: CA-BRISTOL-MYERS SQUIBB COMPANY-BMS-2017-049869

PATIENT
  Age: 74 Year
  Sex: Female

DRUGS (1)
  1. ABATACEPT [Suspect]
     Active Substance: ABATACEPT
     Indication: RHEUMATOID ARTHRITIS
     Dosage: 500 MG (2 VIALS), Q4WK
     Route: 042
     Dates: start: 20150306

REACTIONS (13)
  - Cystitis [Not Recovered/Not Resolved]
  - Oedema peripheral [Unknown]
  - Back pain [Unknown]
  - Erythema [Not Recovered/Not Resolved]
  - Hypotension [Unknown]
  - Pain in extremity [Unknown]
  - Fall [Unknown]
  - Vulval haemorrhage [Recovered/Resolved]
  - Urinary tract infection [Recovered/Resolved]
  - Mass [Unknown]
  - Fatigue [Unknown]
  - Hypertension [Unknown]
  - Oedema [Unknown]

NARRATIVE: CASE EVENT DATE: 20170608
